FAERS Safety Report 12267280 (Version 1)
Quarter: 2016Q2

REPORT INFORMATION
  Report Type: Spontaneous
  Country: None (occurrence: None)
  Receive Date: 20160413
  Receipt Date: 20160413
  Transmission Date: 20160815
  Serious: No
  Sender: FDA-Public Use
  Company Number: None

PATIENT
  Age: 51 Year
  Sex: Female

DRUGS (1)
  1. OTREXUP [Suspect]
     Active Substance: METHOTREXATE
     Indication: PRODUCT USED FOR UNKNOWN INDICATION
     Dosage: 20MG/0.4ML EVERY WEEK SUBCUTANEOUS
     Route: 058
     Dates: start: 20151030

REACTIONS (3)
  - Incorrect dose administered by device [None]
  - Product packaging quantity issue [None]
  - Device issue [None]

NARRATIVE: CASE EVENT DATE: 20160408
